FAERS Safety Report 5196338-3 (Version None)
Quarter: 2007Q1

REPORT INFORMATION
  Report Type: 
  Country: None (occurrence: None)
  Receive Date: 20070102
  Receipt Date: 20061221
  Transmission Date: 20070707
  Serious: Yes (Death)
  Sender: FDA-Public Use
  Company Number: TR-PFIZER INC-2006155949

PATIENT
  Age: 27 Year
  Sex: Female

DRUGS (3)
  1. SERTRALINE [Suspect]
     Dosage: DAILY DOSE:1000MG
     Route: 048
  2. ALPRAZOLAM [Suspect]
     Dosage: DAILY DOSE:30MG
     Route: 048
  3. MIANSERIN [Suspect]
     Dosage: DAILY DOSE:1800MG
     Route: 048

REACTIONS (1)
  - THERAPEUTIC AGENT TOXICITY [None]
